FAERS Safety Report 4735607-5 (Version None)
Quarter: 2005Q3

REPORT INFORMATION
  Report Type: 
  Country: None (occurrence: None)
  Receive Date: 20050805
  Receipt Date: 20050524
  Transmission Date: 20060218
  Serious: Yes (Hospitalization)
  Sender: FDA-Public Use
  Company Number: DE-SANOFI-SYNTHELABO-F04200500077

PATIENT
  Sex: Female
  Weight: 70 kg

DRUGS (7)
  1. ELOXATIN [Suspect]
     Indication: RECTOSIGMOID CANCER
     Route: 041
     Dates: start: 20050331, end: 20050331
  2. CAPECITABINE [Suspect]
     Indication: RECTOSIGMOID CANCER
     Dosage: 1670 MG/M2
     Route: 048
     Dates: start: 20050331, end: 20050406
  3. SIMVASTATIN [Concomitant]
     Indication: DRUG USE FOR UNKNOWN INDICATION
     Route: 048
  4. ASPIRIN [Concomitant]
     Indication: DRUG USE FOR UNKNOWN INDICATION
     Route: 048
  5. NAVOBAN [Concomitant]
     Indication: PROPHYLAXIS OF NAUSEA AND VOMITING
     Dosage: 5 MG
     Route: 042
     Dates: start: 20050301, end: 20050301
  6. VITAMIN B6 [Concomitant]
     Indication: PROPHYLAXIS
     Dosage: 40 MG
     Route: 065
     Dates: start: 20050301, end: 20050301
  7. CA / MG [Concomitant]
     Indication: PROPHYLAXIS
     Dosage: UNK
     Route: 042
     Dates: start: 20050331, end: 20050331

REACTIONS (4)
  - ACUTE PRERENAL FAILURE [None]
  - DEHYDRATION [None]
  - DIARRHOEA [None]
  - GASTROENTERITIS CLOSTRIDIAL [None]
